FAERS Safety Report 22085085 (Version 1)
Quarter: 2023Q1

REPORT INFORMATION
  Report Type: Spontaneous
  Country: US (occurrence: None)
  Receive Date: 20230309
  Receipt Date: 20230309
  Transmission Date: 20230417
  Serious: Yes (Life-Threatening)
  Sender: FDA-Public Use
  Company Number: None

PATIENT
  Age: 72 Year
  Sex: Female

DRUGS (1)
  1. LEVETIRACETAM [Suspect]
     Active Substance: LEVETIRACETAM
     Indication: Epilepsy
     Dosage: OTHER QUANTITY : 3 TABS - 4 TABS;?FREQUENCY : AS DIRECTED;?
     Route: 048
     Dates: start: 20230306

REACTIONS (5)
  - Product substitution issue [None]
  - Dizziness [None]
  - Lethargy [None]
  - Hypersomnia [None]
  - Dialysis [None]
